FAERS Safety Report 17431543 (Version 3)
Quarter: 2020Q1

REPORT INFORMATION
  Report Type: Spontaneous
  Country: LT (occurrence: LT)
  Receive Date: 20200218
  Receipt Date: 20200330
  Transmission Date: 20200409
  Serious: Yes (Hospitalization, Other)
  Sender: FDA-Public Use
  Company Number: LT-JNJFOC-20200226580

PATIENT
  Age: 32 Year
  Sex: Male

DRUGS (16)
  1. ALLOPURINOL. [Concomitant]
     Active Substance: ALLOPURINOL
     Dosage: 100 MG IN THE MORNING
  2. TACROLIMUS. [Interacting]
     Active Substance: TACROLIMUS
     Indication: IMMUNOSUPPRESSION
     Dosage: 6 MG 1 TIME PER DAY
     Route: 065
  3. DOXAZOSIN [Concomitant]
     Active Substance: DOXAZOSIN MESYLATE
     Dosage: 4 MG 1 TIME PER DAY
     Route: 065
  4. OMEPRAZOLE. [Concomitant]
     Active Substance: OMEPRAZOLE
     Dosage: 20 MG 1 TIME PER DAY
  5. PALIPERIDONE PALMITATE [Suspect]
     Active Substance: PALIPERIDONE PALMITATE
     Indication: SCHIZOPHRENIA
     Dosage: 100 MG PALIPERIDONE ONCE A MONTH
     Route: 030
  6. MYCOPHENOLATE MOFETIL. [Interacting]
     Active Substance: MYCOPHENOLATE MOFETIL
     Indication: IMMUNOSUPPRESSION
     Dosage: 500 MG IN THE MORNING, 1000 MG IN THE EVENING
     Route: 065
  7. METHYLPREDNISOLONE. [Interacting]
     Active Substance: METHYLPREDNISOLONE
     Indication: IMMUNOSUPPRESSION
     Dosage: 8 MG 2 TIMES PER DAY
     Route: 065
  8. METOPROLOL SUCCINATE. [Concomitant]
     Active Substance: METOPROLOL SUCCINATE
     Dosage: 150 MG DAILY
     Route: 065
  9. METOPROLOL SUCCINATE. [Concomitant]
     Active Substance: METOPROLOL SUCCINATE
     Dosage: 47.5 MG METOPROLOL
  10. FOSINOPRIL [Concomitant]
     Active Substance: FOSINOPRIL
     Dosage: 10 MG FOSINOPRIL TWICE DAILY
  11. LERCANIDIPINE [Concomitant]
     Active Substance: LERCANIDIPINE
     Dosage: 10 MG LERCANIDIPINE HYDROCHLORIDE
  12. MOXONIDINE [Concomitant]
     Active Substance: MOXONIDINE
     Dosage: 0.4 MG 1 TIME PER DAY
  13. VALGANCICLOVIR. [Concomitant]
     Active Substance: VALGANCICLOVIR
     Dosage: 450 MG 1 TIME PER DAY
     Route: 065
  14. AMLODIPINE [Concomitant]
     Active Substance: AMLODIPINE BESYLATE
     Dosage: 10 MG 1 TIME PER DAY
  15. CLOZAPINE. [Interacting]
     Active Substance: CLOZAPINE
     Indication: SCHIZOPHRENIA
     Dosage: 50 MG
     Route: 065
  16. TIAPRID [Concomitant]
     Active Substance: TIAPRIDE HYDROCHLORIDE
     Dosage: 100 MG 1 TIME PER DAY

REACTIONS (7)
  - Drug ineffective [Unknown]
  - Loss of consciousness [Recovering/Resolving]
  - Drug interaction [Unknown]
  - Asthenia [Recovering/Resolving]
  - Paradoxical drug reaction [Unknown]
  - Confusional state [Recovering/Resolving]
  - Neuroleptic malignant syndrome [Recovering/Resolving]
